FAERS Safety Report 5500752-3 (Version None)
Quarter: 2007Q4

REPORT INFORMATION
  Report Type: 
  Country: None (occurrence: None)
  Receive Date: 20071022
  Receipt Date: 20060925
  Transmission Date: 20080405
  Serious: Yes (Other)
  Sender: FDA-Public Use
  Company Number: 147520USA

PATIENT
  Sex: Female

DRUGS (2)
  1. PROMETHAZINE HCL [Suspect]
     Indication: MIGRAINE
     Dosage: 25 MG, INTRAVENOUS BOLUS
     Route: 040
     Dates: start: 20060904, end: 20060904
  2. HYDROMOROPHONE HYDROCHLORIDE [Concomitant]

REACTIONS (5)
  - EXTRAVASATION [None]
  - INJECTION SITE IRRITATION [None]
  - INJECTION SITE PAIN [None]
  - PHLEBITIS [None]
  - SOFT TISSUE NECROSIS [None]
